FAERS Safety Report 8804875 (Version 1)
Quarter: 2012Q4

REPORT INFORMATION
  Report Type: 
  Country: US (occurrence: US)
  Receive Date: 20120924
  Receipt Date: 20120924
  Transmission Date: 20130627
  Serious: Yes (Other)
  Sender: FDA-Public Use
  Company Number: CHPA2012US019835

PATIENT
  Age: 80 Year
  Sex: Female

DRUGS (3)
  1. TRIAMINIC VAPOR PATCH [Suspect]
     Indication: COUGH
     Dosage: 1 PATCH, PRN
     Route: 062
     Dates: end: 2007
  2. TRIAMINIC CHILDRENS NIGHT TIME COLD AND COUGH [Suspect]
     Indication: COUGH
     Dosage: 1 DF, AT BEDTIME, PRN
     Route: 048
  3. LEVOXYL [Concomitant]
     Indication: THYROID DISORDER
     Dosage: Unk, Unk

REACTIONS (3)
  - Osteoporosis [Recovered/Resolved]
  - Acute sinusitis [Recovered/Resolved]
  - Cough [Recovered/Resolved]
